FAERS Safety Report 6396229-6 (Version None)
Quarter: 2009Q4

REPORT INFORMATION
  Report Type: 
  Country: None (occurrence: None)
  Receive Date: 20091012
  Receipt Date: 20070802
  Transmission Date: 20100525
  Serious: Yes (Hospitalization)
  Sender: FDA-Public Use
  Company Number: US-ASTRAZENECA-2006UW24102

PATIENT
  Age: 15061 Day
  Sex: Female
  Weight: 103 kg

DRUGS (5)
  1. SEROQUEL [Suspect]
     Indication: SLEEP DISORDER
     Route: 048
     Dates: start: 20040101, end: 20040101
  2. INSULIN [Concomitant]
     Dosage: 6 UNITS
     Dates: start: 20040119
  3. GLUCOPHAGE [Concomitant]
     Dosage: 500 MG - 1000 MG
     Dates: start: 20040119
  4. SYNTHROID [Concomitant]
     Dates: start: 20040818
  5. XANAX [Concomitant]
     Dates: start: 20040818

REACTIONS (8)
  - BLOOD GLUCOSE INCREASED [None]
  - CHOLELITHIASIS [None]
  - DIABETES MELLITUS [None]
  - DIABETES MELLITUS INADEQUATE CONTROL [None]
  - GALLBLADDER OPERATION [None]
  - PANCREATITIS [None]
  - PANCREATITIS CHRONIC [None]
  - TYPE 2 DIABETES MELLITUS [None]
